FAERS Safety Report 21866841 (Version 1)
Quarter: 2023Q1

REPORT INFORMATION
  Report Type: Spontaneous
  Country: CA (occurrence: CA)
  Receive Date: 20230116
  Receipt Date: 20230116
  Transmission Date: 20230417
  Serious: Yes (Hospitalization)
  Sender: FDA-Public Use
  Company Number: CA-PFIZER INC-202300015961

PATIENT
  Age: 62 Year
  Sex: Male
  Weight: 61 kg

DRUGS (3)
  1. CARBOPLATIN [Suspect]
     Active Substance: CARBOPLATIN
     Indication: Lung neoplasm malignant
     Dosage: 540 MG, EVERY 3 WEEKS
     Route: 041
  2. PEMETREXED [Suspect]
     Active Substance: PEMETREXED
     Dosage: 930 MG, EVERY 3 WEEKS
     Route: 042
  3. KEYTRUDA [Suspect]
     Active Substance: PEMBROLIZUMAB
     Indication: Lung neoplasm malignant
     Dosage: 130 MG, EVERY 3 WEEKS
     Route: 041

REACTIONS (4)
  - Asthenia [Recovered/Resolved]
  - Decreased appetite [Recovered/Resolved]
  - General physical health deterioration [Recovered/Resolved]
  - Vomiting [Recovered/Resolved]
